FAERS Safety Report 19264672 (Version 1)
Quarter: 2021Q2

REPORT INFORMATION
  Report Type: Spontaneous
  Country: GR (occurrence: GR)
  Receive Date: 20210517
  Receipt Date: 20210517
  Transmission Date: 20210717
  Serious: Yes (Other)
  Sender: FDA-Public Use
  Company Number: NVSC2021GR098431

PATIENT
  Age: 76 Year
  Sex: Female

DRUGS (12)
  1. LOPRESOR [Suspect]
     Active Substance: METOPROLOL
     Dosage: UNK (ONE EIGHTH TABLET BID ON HER OWN INITIATIVE )
     Route: 048
     Dates: end: 202103
  2. SINTROM [Concomitant]
     Active Substance: ACENOCOUMAROL
     Indication: PRODUCT USED FOR UNKNOWN INDICATION
     Dosage: 1 DF, QD 1 TABLET PER DAY
     Route: 065
  3. LOPRESOR [Suspect]
     Active Substance: METOPROLOL
     Indication: ATRIAL FIBRILLATION
     Dosage: UNK(HALF TABLET IN MORNING AND IN EVENING FOLLOWING PHYSICIANS ADVICE)
     Route: 048
     Dates: start: 2009, end: 202103
  4. T4 [Concomitant]
     Active Substance: LEVOTHYROXINE
     Indication: THYROID DISORDER
     Dosage: UNK (1 TABLET PER DAY)
     Route: 065
  5. LOPRESOR [Suspect]
     Active Substance: METOPROLOL
     Dosage: UNK (ONE FOURTH TABLET ONCE DAILY (ON HER OWN INITIATIVE) )
     Route: 048
  6. PANTIUM [Concomitant]
     Indication: PROPHYLAXIS
     Dosage: UNK (1 TABLET PER DAY)
     Route: 065
  7. LOPRESOR [Suspect]
     Active Substance: METOPROLOL
     Dosage: UNK (ONE FOURTH TABLET BID )
     Route: 048
  8. COAPROVEL [Concomitant]
     Active Substance: HYDROCHLOROTHIAZIDE\IRBESARTAN
     Indication: HYPERTENSION
     Dosage: 1 DF, QD
     Route: 065
  9. ONEALFA [Concomitant]
     Active Substance: ALFACALCIDOL
     Indication: OSTEOPOROSIS
     Dosage: 1 DF, QD 1 TABLET PER DAY
     Route: 065
  10. ZANIDIP [Concomitant]
     Active Substance: LERCANIDIPINE HYDROCHLORIDE
     Indication: HYPERTENSION
     Dosage: UNK
     Route: 065
  11. MAG 2 [Concomitant]
     Active Substance: MAGNESIUM
     Indication: OSTEOPOROSIS
     Dosage: UNK (1 PER DAY)
     Route: 065
  12. BIGER [Concomitant]
     Indication: BLOOD CHOLESTEROL INCREASED
     Dosage: 1 DF, QD 1 TABLET PER DAY
     Route: 065

REACTIONS (5)
  - Intentional product misuse [Unknown]
  - Underdose [Unknown]
  - Sinus arrest [Unknown]
  - Heart rate decreased [Recovering/Resolving]
  - Off label use [Unknown]

NARRATIVE: CASE EVENT DATE: 202103
